FAERS Safety Report 24438093 (Version 1)
Quarter: 2024Q4

REPORT INFORMATION
  Report Type: Report from Study
  Country: US (occurrence: US)
  Receive Date: 20241015
  Receipt Date: 20241015
  Transmission Date: 20250115
  Serious: Yes (Hospitalization)
  Sender: ROCHE
  Company Number: US-ROCHE-10000102757

PATIENT
  Age: 65 Year
  Sex: Female
  Weight: 68.04 kg

DRUGS (7)
  1. GAZYVA [Suspect]
     Active Substance: OBINUTUZUMAB
     Indication: Waldenstrom^s macroglobulinaemia
     Dosage: EVERY MONTH
     Route: 050
     Dates: end: 20241001
  2. RITUXAN [Suspect]
     Active Substance: RITUXIMAB
     Indication: Waldenstrom^s macroglobulinaemia
     Route: 042
     Dates: start: 20240506, end: 20240702
  3. BENDAMUSTINE [Suspect]
     Active Substance: BENDAMUSTINE
     Indication: Chemotherapy
     Route: 065
     Dates: start: 202405
  4. OLMESARTAN [Concomitant]
     Active Substance: OLMESARTAN
  5. LETROZOLE [Concomitant]
     Active Substance: LETROZOLE
  6. LUBIPROSTONE [Concomitant]
     Active Substance: LUBIPROSTONE
  7. SODIUM CHLORIDE [Concomitant]
     Active Substance: SODIUM CHLORIDE

REACTIONS (9)
  - Off label use [Unknown]
  - Pallor [Recovered/Resolved]
  - Hypotension [Recovered/Resolved]
  - Gait disturbance [Recovered/Resolved]
  - Trismus [Recovered/Resolved]
  - Inflammation [Recovered/Resolved]
  - Weight increased [Recovered/Resolved]
  - Skin exfoliation [Recovered/Resolved]
  - Off label use [Unknown]

NARRATIVE: CASE EVENT DATE: 20240506
